FAERS Safety Report 20291309 (Version 1)
Quarter: 2022Q1

REPORT INFORMATION
  Report Type: Report from Study
  Country: ES (occurrence: ES)
  Receive Date: 20220104
  Receipt Date: 20220104
  Transmission Date: 20220423
  Serious: Yes (Death, Hospitalization)
  Sender: FDA-Public Use
  Company Number: None

PATIENT
  Age: 95 Year
  Sex: Male

DRUGS (2)
  1. RISPERIDONE [Interacting]
     Active Substance: RISPERIDONE
     Indication: Agitation
     Dosage: UNK
     Dates: start: 20200429, end: 20200503
  2. HALOPERIDOL [Interacting]
     Active Substance: HALOPERIDOL
     Indication: Agitation
     Dosage: UNK
     Dates: start: 202004, end: 20200429

REACTIONS (2)
  - Neuroleptic malignant syndrome [Fatal]
  - Drug interaction [Unknown]

NARRATIVE: CASE EVENT DATE: 20200429
